FAERS Safety Report 10534206 (Version 3)
Quarter: 2014Q4

REPORT INFORMATION
  Report Type: Spontaneous
  Country: US (occurrence: None)
  Receive Date: 20141020
  Receipt Date: 20141120
  Transmission Date: 20150529
  Serious: Yes (Other)
  Sender: FDA-Public Use
  Company Number: 2014-US-011487

PATIENT
  Age: 34 Year
  Sex: Male
  Weight: 59.9 kg

DRUGS (11)
  1. OXYMORPHONE (OXYMORPHONE HYDROCHLORIDE) [Concomitant]
  2. XYREM [Suspect]
     Active Substance: SODIUM OXYBATE
     Indication: NARCOLEPSY
     Route: 048
     Dates: start: 201112, end: 201112
  3. OXYCODONE (OXYCODONE HYDROCHLORIDE, PARACETAMOL) [Concomitant]
  4. ADDERALL [Concomitant]
     Active Substance: AMPHETAMINE ASPARTATE\AMPHETAMINE SULFATE\DEXTROAMPHETAMINE SACCHARATE\DEXTROAMPHETAMINE SULFATE
  5. XYREM [Suspect]
     Active Substance: SODIUM OXYBATE
     Indication: TIC
     Route: 048
     Dates: start: 201112, end: 201112
  6. CANNABIS SATIVA SUBSP. SATIVA FLOWERING TOP [Concomitant]
     Active Substance: CANNABIS SATIVA SUBSP. SATIVA FLOWERING TOP
  7. HYDROXYZINE (HYDROXYZINE) [Concomitant]
     Active Substance: HYDROXYZINE HYDROCHLORIDE
  8. ALPRAZOLAM (ALPRAZOLAM) [Concomitant]
     Active Substance: ALPRAZOLAM
  9. METHADONE [Concomitant]
     Active Substance: METHADONE HYDROCHLORIDE
  10. XYREM [Suspect]
     Active Substance: SODIUM OXYBATE
     Indication: SOMNOLENCE
     Route: 048
     Dates: start: 201112, end: 201112
  11. LORAZEPAM (LORAZEPAM) [Concomitant]
     Active Substance: LORAZEPAM

REACTIONS (6)
  - Chest injury [None]
  - Chest pain [None]
  - Device dislocation [None]
  - Pneumonia [None]
  - Device failure [None]
  - Blood testosterone decreased [None]

NARRATIVE: CASE EVENT DATE: 20140414
